FAERS Safety Report 21734270 (Version 1)
Quarter: 2022Q4

REPORT INFORMATION
  Report Type: Spontaneous
  Country: CN (occurrence: CN)
  Receive Date: 20221215
  Receipt Date: 20221215
  Transmission Date: 20230113
  Serious: Yes (Other)
  Sender: FDA-Public Use
  Company Number: CN-ELI_LILLY_AND_COMPANY-CN202212004359

PATIENT
  Sex: Male

DRUGS (2)
  1. HUMULIN R [Suspect]
     Active Substance: INSULIN HUMAN
     Indication: Diabetes mellitus
     Dosage: 17 U, TID (15-17 UNITS EVERY TIME)
     Route: 058
     Dates: start: 2002
  2. HUMULIN N [Suspect]
     Active Substance: INSULIN HUMAN
     Indication: Diabetes mellitus
     Dosage: 22 U, EACH EVENING
     Route: 058
     Dates: start: 2002

REACTIONS (6)
  - Visual impairment [Not Recovered/Not Resolved]
  - Retinal disorder [Not Recovered/Not Resolved]
  - Capillary disorder [Not Recovered/Not Resolved]
  - Retinal haemorrhage [Not Recovered/Not Resolved]
  - Accidental underdose [Unknown]
  - Accidental underdose [Unknown]

NARRATIVE: CASE EVENT DATE: 20120101
